FAERS Safety Report 8158798-5 (Version None)
Quarter: 2012Q1

REPORT INFORMATION
  Report Type: 
  Country: None (occurrence: None)
  Receive Date: 20120223
  Receipt Date: 20120215
  Transmission Date: 20120608
  Serious: Yes (Other)
  Sender: FDA-Public Use
  Company Number: PHHY2012TW013106

PATIENT
  Age: 52 Year
  Sex: Male

DRUGS (1)
  1. RISPERIDONE [Suspect]
     Indication: SCHIZOPHRENIA
     Dosage: 2 MG, BID

REACTIONS (10)
  - GRANULOMA [None]
  - SKIN MASS [None]
  - HYPERPROLACTINAEMIA [None]
  - DERMATITIS [None]
  - SUBCUTANEOUS ABSCESS [None]
  - GYNAECOMASTIA [None]
  - BLOOD PROLACTIN INCREASED [None]
  - SKIN LESION [None]
  - SKIN ULCER [None]
  - BLOODY DISCHARGE [None]
